FAERS Safety Report 10780508 (Version 1)
Quarter: 2015Q1

REPORT INFORMATION
  Report Type: Spontaneous
  Country: US (occurrence: None)
  Receive Date: 20150209
  Receipt Date: 20150209
  Transmission Date: 20150721
  Serious: No
  Sender: FDA-Public Use
  Company Number: None

PATIENT
  Sex: Female

DRUGS (1)
  1. STRATTERA [Suspect]
     Active Substance: ATOMOXETINE HYDROCHLORIDE
     Dates: start: 20130916, end: 20140516

REACTIONS (2)
  - Breast pain [None]
  - Breast enlargement [None]

NARRATIVE: CASE EVENT DATE: 20140101
